FAERS Safety Report 4761677-4 (Version None)
Quarter: 2005Q3

REPORT INFORMATION
  Report Type: 
  Country: None (occurrence: None)
  Receive Date: 20050906
  Receipt Date: 20050124
  Transmission Date: 20060218
  Serious: Yes (Death)
  Sender: FDA-Public Use
  Company Number: DE-SANOFI-SYNTHELABO-A04200500059

PATIENT
  Sex: Male

DRUGS (1)
  1. STILNOX [Suspect]
     Indication: INTENTIONAL MISUSE
     Route: 048
     Dates: start: 20050101, end: 20050101

REACTIONS (4)
  - COMPLETED SUICIDE [None]
  - ILL-DEFINED DISORDER [None]
  - INTENTIONAL MISUSE [None]
  - OVERDOSE [None]
